FAERS Safety Report 24388215 (Version 2)
Quarter: 2024Q4

REPORT INFORMATION
  Report Type: Spontaneous
  Country: CN (occurrence: CN)
  Receive Date: 20241002
  Receipt Date: 20241008
  Transmission Date: 20250115
  Serious: Yes (Hospitalization, Other)
  Sender: MERCK
  Company Number: CN-009507513-2409CHN009350

PATIENT
  Age: 67 Year
  Sex: Male
  Weight: 60 kg

DRUGS (1)
  1. JANUMET [Suspect]
     Active Substance: METFORMIN HYDROCHLORIDE\SITAGLIPTIN PHOSPHATE
     Indication: Type 2 diabetes mellitus
     Dosage: 1 TABLET, QD
     Route: 048
     Dates: start: 20240901, end: 20240921

REACTIONS (4)
  - Hepatic enzyme increased [Recovering/Resolving]
  - Hepatitis toxic [Unknown]
  - Vomiting [Recovering/Resolving]
  - Abdominal discomfort [Unknown]

NARRATIVE: CASE EVENT DATE: 20240921
